FAERS Safety Report 4453944-9 (Version None)
Quarter: 2004Q3

REPORT INFORMATION
  Report Type: 
  Country: None (occurrence: None)
  Receive Date: 20040920
  Receipt Date: 20040910
  Transmission Date: 20050211
  Serious: Yes (Hospitalization)
  Sender: FDA-Public Use
  Company Number: PHFR2004GB03473

PATIENT
  Age: 32 Year
  Sex: Female

DRUGS (2)
  1. DICLOFENAC [Suspect]
     Indication: PAIN
     Dosage: 50 MG, TID
     Route: 048
     Dates: start: 20040810, end: 20040824
  2. TRAMADOL HCL [Suspect]
     Indication: PAIN
     Dosage: 100 MG, TID
     Route: 048
     Dates: start: 20040811, end: 20040824

REACTIONS (4)
  - BLOOD GLUCOSE INCREASED [None]
  - CONVULSION [None]
  - NEUTROPHIL COUNT INCREASED [None]
  - WHITE BLOOD CELL COUNT INCREASED [None]
